FAERS Safety Report 5647154-7 (Version None)
Quarter: 2008Q1

REPORT INFORMATION
  Report Type: 
  Country: None (occurrence: None)
  Receive Date: 20080303
  Receipt Date: 20080225
  Transmission Date: 20080703
  Serious: Yes (Hospitalization, Other)
  Sender: FDA-Public Use
  Company Number: US-MERCK-0708USA01844

PATIENT
  Age: 69 Year
  Sex: Male

DRUGS (4)
  1. FOSAMAX [Suspect]
     Indication: OSTEOPOROSIS
     Route: 048
     Dates: start: 19990901, end: 20020301
  2. FOSAMAX [Suspect]
     Route: 048
     Dates: start: 20020401, end: 20051201
  3. CORTICOSTEROIDS (UNSPECIFIED) [Concomitant]
     Route: 065
     Dates: start: 19970101
  4. METHOTREXATE [Concomitant]
     Route: 065
     Dates: start: 19970101

REACTIONS (16)
  - ADVERSE REACTION [None]
  - ANXIETY [None]
  - BACK DISORDER [None]
  - BASAL CELL CARCINOMA [None]
  - BREAST MASS [None]
  - CONTUSION [None]
  - DEPRESSION [None]
  - HERNIA [None]
  - IRRITABILITY [None]
  - JAW FRACTURE [None]
  - LUMBAR SPINAL STENOSIS [None]
  - OSTEOMYELITIS [None]
  - OSTEONECROSIS [None]
  - SEBORRHOEA [None]
  - SOMNOLENCE [None]
  - SQUAMOUS CELL CARCINOMA OF SKIN [None]
